FAERS Safety Report 6141761-3 (Version None)
Quarter: 2009Q1

REPORT INFORMATION
  Report Type: 
  Country: None (occurrence: None)
  Receive Date: 20090331
  Receipt Date: 20090317
  Transmission Date: 20090719
  Serious: Yes (Death, Life-Threatening, Hospitalization, Disabling, Other)
  Sender: FDA-Public Use
  Company Number: MOZO-1000173

PATIENT
  Age: 57 Year
  Sex: Male
  Weight: 72 kg

DRUGS (11)
  1. MOZOBIL [Suspect]
     Indication: HAEMATOPOIETIC STEM CELL MOBILISATION
     Dosage: 17.3 MG, BID, SUBCUTANEOUS
     Route: 058
     Dates: start: 20090216, end: 20090217
  2. LANTON (LANSOPRAZOLE) [Concomitant]
  3. NOREPINEPHRINE BITARTRATE [Concomitant]
  4. PIPERACILLIN SODIUM AND TAZOBACTAM SODIUM [Concomitant]
  5. VANCOMYCIN [Concomitant]
  6. THALIDOMIDE [Concomitant]
  7. DEXAMETHASONE TAB [Concomitant]
  8. OMEPRAZOLE [Concomitant]
  9. XATRAL (ALFUZOSIN HYDROCHLORIDE) [Concomitant]
  10. HEPARIN [Concomitant]
  11. G-CSF (GRANULOCYTE COLONY STIMULATING FACTOR) [Concomitant]

REACTIONS (15)
  - ACUTE RESPIRATORY FAILURE [None]
  - ASCITES [None]
  - ASTHENIA [None]
  - COLITIS [None]
  - DEEP VEIN THROMBOSIS [None]
  - GENERAL PHYSICAL HEALTH DETERIORATION [None]
  - GENERALISED OEDEMA [None]
  - HYPOALBUMINAEMIA [None]
  - MALAISE [None]
  - OEDEMA PERIPHERAL [None]
  - PLEURAL EFFUSION [None]
  - PULMONARY EMBOLISM [None]
  - SHOCK [None]
  - TACHYCARDIA [None]
  - VOMITING [None]
